FAERS Safety Report 10997334 (Version 36)
Quarter: 2019Q1

REPORT INFORMATION
  Report Type: Report from Study
  Country: US (occurrence: US)
  Receive Date: 20150408
  Receipt Date: 20190308
  Transmission Date: 20190417
  Serious: Yes (Life-Threatening, Hospitalization, Other)
  Sender: FDA-Public Use
  Company Number: US-SA-2015SA033181

PATIENT
  Age: 62 Year
  Sex: Female

DRUGS (8)
  1. ALEMTUZUMAB [Suspect]
     Active Substance: ALEMTUZUMAB
     Dosage: 12 MG,QD
     Route: 041
     Dates: start: 20150309, end: 20150310
  2. AMPYRA [Concomitant]
     Active Substance: DALFAMPRIDINE
     Dosage: 10 MG,BID
  3. LEXAPRO [Concomitant]
     Active Substance: ESCITALOPRAM OXALATE
     Dosage: 10 MG,QD
  4. ALEMTUZUMAB [Suspect]
     Active Substance: ALEMTUZUMAB
     Dosage: 12 MG,QD
     Route: 041
     Dates: start: 20160421, end: 20160423
  5. ALEMTUZUMAB [Suspect]
     Active Substance: ALEMTUZUMAB
     Indication: MULTIPLE SCLEROSIS
     Dosage: 12 MG,QD
     Route: 041
     Dates: start: 20150302, end: 20150304
  6. AUBAGIO [Concomitant]
     Active Substance: TERIFLUNOMIDE
     Dosage: UNK UNK,UNK
  7. SYNTHROID [Concomitant]
     Active Substance: LEVOTHYROXINE SODIUM
     Dosage: 150 MG,QD
  8. AMANTADINE. [Concomitant]
     Active Substance: AMANTADINE HYDROCHLORIDE
     Dosage: 8 MG,QD

REACTIONS (77)
  - Memory impairment [Recovered/Resolved]
  - Abnormal behaviour [Recovered/Resolved]
  - Haemorrhage [Unknown]
  - Peripheral swelling [Recovered/Resolved]
  - Peripheral swelling [Not Recovered/Not Resolved]
  - Condition aggravated [Not Recovered/Not Resolved]
  - Discomfort [Unknown]
  - Muscle strain [Not Recovered/Not Resolved]
  - Central nervous system lesion [Not Recovered/Not Resolved]
  - Urinary tract infection [Not Recovered/Not Resolved]
  - Blood pressure increased [Not Recovered/Not Resolved]
  - White blood cell count decreased [Unknown]
  - Immunodeficiency [Not Recovered/Not Resolved]
  - Subdural haematoma [Recovered/Resolved]
  - Road traffic accident [Unknown]
  - Muscular weakness [Not Recovered/Not Resolved]
  - Mobility decreased [Not Recovered/Not Resolved]
  - Skin discolouration [Not Recovered/Not Resolved]
  - Pain in extremity [Recovered/Resolved]
  - Urinary incontinence [Not Recovered/Not Resolved]
  - Fatigue [Recovered/Resolved]
  - Palpitations [Recovered/Resolved]
  - Bowel movement irregularity [Not Recovered/Not Resolved]
  - Malnutrition [Unknown]
  - Syncope [Not Recovered/Not Resolved]
  - Confusional state [Recovered/Resolved]
  - Disturbance in attention [Not Recovered/Not Resolved]
  - Computerised tomogram abnormal [Recovered/Resolved]
  - Contusion [Not Recovered/Not Resolved]
  - Fall [Not Recovered/Not Resolved]
  - Oral mucosal discolouration [Not Recovered/Not Resolved]
  - Peroneal nerve palsy [Recovering/Resolving]
  - Heart rate increased [Not Recovered/Not Resolved]
  - Arthralgia [Not Recovered/Not Resolved]
  - Rash macular [Not Recovered/Not Resolved]
  - Unevaluable event [Not Recovered/Not Resolved]
  - Presyncope [Not Recovered/Not Resolved]
  - Peripheral vascular disorder [Not Recovered/Not Resolved]
  - Feeling abnormal [Unknown]
  - Asthenia [Not Recovered/Not Resolved]
  - Skin atrophy [Not Recovered/Not Resolved]
  - Blood disorder [Not Recovered/Not Resolved]
  - Anaemia [Not Recovered/Not Resolved]
  - Diverticulitis [Not Recovered/Not Resolved]
  - Cerebral haemorrhage [Recovered/Resolved]
  - Wrist fracture [Recovered/Resolved]
  - Hypoaesthesia [Recovering/Resolving]
  - Blood count abnormal [Not Recovered/Not Resolved]
  - Dehydration [Recovering/Resolving]
  - Insomnia [Not Recovered/Not Resolved]
  - Skin laceration [Not Recovered/Not Resolved]
  - Dysphonia [Not Recovered/Not Resolved]
  - Headache [Recovered/Resolved]
  - Vasodilatation [Not Recovered/Not Resolved]
  - Skin discolouration [Not Recovered/Not Resolved]
  - Movement disorder [Not Recovered/Not Resolved]
  - Grip strength decreased [Not Recovered/Not Resolved]
  - Depression [Unknown]
  - Feeling hot [Not Recovered/Not Resolved]
  - Skin disorder [Recovered/Resolved]
  - Haematochezia [Not Recovered/Not Resolved]
  - Depressed mood [Not Recovered/Not Resolved]
  - Functional gastrointestinal disorder [Unknown]
  - Feeling cold [Unknown]
  - Diplopia [Not Recovered/Not Resolved]
  - Dry skin [Not Recovered/Not Resolved]
  - Dysstasia [Recovering/Resolving]
  - Flushing [Not Recovered/Not Resolved]
  - Skin haemorrhage [Recovered/Resolved]
  - Dysarthria [Recovered/Resolved]
  - Aphthous ulcer [Unknown]
  - Clumsiness [Not Recovered/Not Resolved]
  - Unevaluable event [Recovered/Resolved]
  - Rash [Not Recovered/Not Resolved]
  - Skin discolouration [Not Recovered/Not Resolved]
  - Petechiae [Not Recovered/Not Resolved]
  - Confusional state [Not Recovered/Not Resolved]

NARRATIVE: CASE EVENT DATE: 2015
